FAERS Safety Report 7517161-8 (Version None)
Quarter: 2011Q2

REPORT INFORMATION
  Report Type: 
  Country: None (occurrence: None)
  Receive Date: 20110601
  Receipt Date: 20110524
  Transmission Date: 20111010
  Serious: Yes (Other)
  Sender: FDA-Public Use
  Company Number: BR-PFIZER INC-2011111735

PATIENT
  Age: 84 Year
  Sex: Female
  Weight: 60 kg

DRUGS (9)
  1. XALATAN [Suspect]
     Indication: GLAUCOMA
     Dosage: UNK
     Route: 047
  2. BENICAR [Concomitant]
     Indication: HYPERTENSION
     Dosage: UNK
     Dates: start: 20110201
  3. GABAPENTIN [Concomitant]
     Indication: HERPES ZOSTER
     Dosage: UNK
  4. CLONIDINE HYDROCHLORIDE [Concomitant]
     Indication: BLOOD PRESSURE INCREASED
     Dosage: UNK
     Dates: start: 20110201
  5. MULTIVITAMIN [Concomitant]
     Dosage: UNK
  6. AZOPT [Concomitant]
     Indication: VISUAL IMPAIRMENT
     Dosage: UNK
  7. SIMVALIP [Concomitant]
     Indication: CARDIAC DISORDER
     Dosage: UNK
  8. AZITHROMYCIN [Concomitant]
     Indication: BRONCHIECTASIS
     Dosage: UNK
  9. TRISORB [Concomitant]
     Indication: VISUAL IMPAIRMENT
     Dosage: UNK

REACTIONS (1)
  - VISUAL FIELD TESTS ABNORMAL [None]
